FAERS Safety Report 6497152-9 (Version None)
Quarter: 2009Q4

REPORT INFORMATION
  Report Type: 
  Country: None (occurrence: None)
  Receive Date: 20091215
  Receipt Date: 20090421
  Transmission Date: 20100525
  Serious: No
  Sender: FDA-Public Use
  Company Number: A0779917A

PATIENT
  Age: 26 Year
  Sex: Male

DRUGS (2)
  1. AVODART [Suspect]
     Dosage: .5MG THREE TIMES PER WEEK
     Route: 048
     Dates: start: 20090209, end: 20090417
  2. NO CONCURRENT MEDICATION [Concomitant]

REACTIONS (3)
  - ERECTILE DYSFUNCTION [None]
  - HAIR GROWTH ABNORMAL [None]
  - LIBIDO DECREASED [None]
